FAERS Safety Report 5669281-0 (Version None)
Quarter: 2008Q1

REPORT INFORMATION
  Report Type: 
  Country: None (occurrence: None)
  Receive Date: 20080317
  Receipt Date: 20080310
  Transmission Date: 20080703
  Serious: Yes (Hospitalization)
  Sender: FDA-Public Use
  Company Number: FR-TEVA-165866ISR

PATIENT
  Age: 17 Year
  Sex: Male

DRUGS (7)
  1. VINCRISTINE [Suspect]
  2. DOXORUBICIN HCL [Suspect]
  3. METHOTREXATE [Suspect]
  4. ETOPOSIDE [Suspect]
  5. CYCLOPHOSPHAMIDE [Suspect]
  6. CYTARABINE [Suspect]
  7. PREDNISONE TAB [Concomitant]

REACTIONS (2)
  - HEPATOSPLENIC CANDIDIASIS [None]
  - IMMUNE RECONSTITUTION SYNDROME [None]
